FAERS Safety Report 9523050 (Version 1)
Quarter: 2013Q3

REPORT INFORMATION
  Report Type: Spontaneous
  Country: US (occurrence: US)
  Receive Date: 20130913
  Receipt Date: 20130913
  Transmission Date: 20140515
  Serious: Yes (Other)
  Sender: FDA-Public Use
  Company Number: CHPA2013US014168

PATIENT
  Age: 74 Year
  Sex: Female

DRUGS (4)
  1. EXCEDRIN EXTRA STRENGTH [Suspect]
     Indication: HERPES ZOSTER
     Dosage: UNK, UNK
     Route: 048
  2. EXCEDRIN EXTRA STRENGTH [Suspect]
     Indication: MIGRAINE
  3. EXCEDRIN EXTRA STRENGTH [Suspect]
     Indication: HERPES ZOSTER
     Dosage: UNK,  UNK
     Route: 048
  4. EXCEDRIN EXTRA STRENGTH [Suspect]
     Indication: MIGRAINE

REACTIONS (3)
  - Herpes zoster [Unknown]
  - Off label use [Unknown]
  - Therapeutic response unexpected [Unknown]
